FAERS Safety Report 7540847-6 (Version None)
Quarter: 2011Q2

REPORT INFORMATION
  Report Type: 
  Country: None (occurrence: None)
  Receive Date: 20110603
  Receipt Date: 20101102
  Transmission Date: 20111010
  Serious: Yes (Hospitalization)
  Sender: FDA-Public Use
  Company Number: 2011MA006404

PATIENT
  Sex: Male

DRUGS (1)
  1. LOSARTAN POTASSIUM [Suspect]

REACTIONS (2)
  - HYPERTENSIVE CRISIS [None]
  - DYSPNOEA [None]
